FAERS Safety Report 7290620-1 (Version None)
Quarter: 2011Q1

REPORT INFORMATION
  Report Type: 
  Country: None (occurrence: None)
  Receive Date: 20110214
  Receipt Date: 20080707
  Transmission Date: 20110831
  Serious: Yes (Other)
  Sender: FDA-Public Use
  Company Number: JP-ASTRAZENECA-2008AP05296

PATIENT
  Age: 33 Year
  Sex: Female

DRUGS (1)
  1. CRESTOR [Suspect]
     Dosage: 50 MG
     Route: 048

REACTIONS (4)
  - SUICIDE ATTEMPT [None]
  - BLOOD PRESSURE DECREASED [None]
  - OVERDOSE [None]
  - SOMNOLENCE [None]
